FAERS Safety Report 7453871-9 (Version None)
Quarter: 2011Q2

REPORT INFORMATION
  Report Type: 
  Country: None (occurrence: None)
  Receive Date: 20110502
  Receipt Date: 20110425
  Transmission Date: 20111010
  Serious: Yes (Death, Other)
  Sender: FDA-Public Use
  Company Number: PHHY2011US34940

PATIENT
  Age: 87 Year
  Sex: Female

DRUGS (3)
  1. IMATINIB [Suspect]
     Indication: METASTATIC NEOPLASM
     Dosage: 400 MG, DAILY
     Route: 048
     Dates: start: 20091101
  2. IMATINIB [Suspect]
     Dosage: 800 MG, DAILY
     Route: 048
  3. IMATINIB [Suspect]
     Dosage: 400 MG, DAILY
     Route: 048

REACTIONS (5)
  - OEDEMA PERIPHERAL [None]
  - DRUG INTOLERANCE [None]
  - FATIGUE [None]
  - DYSPNOEA EXERTIONAL [None]
  - METASTATIC MALIGNANT MELANOMA [None]
